FAERS Safety Report 9746986 (Version 1)
Quarter: 2013Q4

REPORT INFORMATION
  Report Type: Spontaneous
  Country: US (occurrence: US)
  Receive Date: 20131211
  Receipt Date: 20131211
  Transmission Date: 20140711
  Serious: No
  Sender: FDA-Public Use
  Company Number: US-TEVA-450556USA

PATIENT
  Sex: Female
  Weight: 72.64 kg

DRUGS (1)
  1. PLAN B [Suspect]
     Indication: POST COITAL CONTRACEPTION
     Route: 048
     Dates: start: 2003, end: 2003

REACTIONS (2)
  - Fatigue [Recovered/Resolved]
  - Menstruation irregular [Recovered/Resolved]
